FAERS Safety Report 4743873-5 (Version None)
Quarter: 2005Q3

REPORT INFORMATION
  Report Type: 
  Country: None (occurrence: None)
  Receive Date: 20050809
  Receipt Date: 20050729
  Transmission Date: 20060218
  Serious: Yes (Hospitalization)
  Sender: FDA-Public Use
  Company Number: HQWYE685324JUN05

PATIENT
  Age: 60 Year
  Sex: Female

DRUGS (1)
  1. RIFUN (PANTOPRAZOLE, TABLET, DELAYED RELEASE) [Suspect]
     Indication: GASTRIC ULCER
     Dosage: 40 MG 2X PER 1 DAY
     Route: 048
     Dates: start: 20050525

REACTIONS (2)
  - HEPATIC FAILURE [None]
  - HEPATITIS B [None]
